FAERS Safety Report 23573643 (Version 1)
Quarter: 2024Q1

REPORT INFORMATION
  Report Type: Spontaneous
  Country: FR (occurrence: FR)
  Receive Date: 20240228
  Receipt Date: 20240228
  Transmission Date: 20240410
  Serious: Yes (Other)
  Sender: FDA-Public Use
  Company Number: None

PATIENT
  Sex: Female

DRUGS (1)
  1. ACYCLOVIR [Suspect]
     Active Substance: ACYCLOVIR
     Indication: Herpes zoster
     Dosage: 10MG/KG X3/DAY
     Route: 042
     Dates: start: 20230319, end: 20230321

REACTIONS (2)
  - Hallucination, visual [Unknown]
  - Renal failure [Unknown]

NARRATIVE: CASE EVENT DATE: 20230321
